FAERS Safety Report 8189516-2 (Version None)
Quarter: 2012Q1

REPORT INFORMATION
  Report Type: 
  Country: None (occurrence: None)
  Receive Date: 20120307
  Receipt Date: 20120302
  Transmission Date: 20120608
  Serious: No
  Sender: FDA-Public Use
  Company Number: US-PFIZER INC-2012042225

PATIENT
  Sex: Female
  Weight: 79.365 kg

DRUGS (3)
  1. CITRACAL [Concomitant]
  2. ESTRING [Suspect]
     Indication: VULVOVAGINAL DRYNESS
  3. ESTRING [Suspect]
     Indication: MENOPAUSE
     Dosage: 2 MG, UNK
     Route: 067
     Dates: start: 20110201

REACTIONS (1)
  - VULVOVAGINAL MYCOTIC INFECTION [None]
